FAERS Safety Report 9174027 (Version 1)
Quarter: 2013Q1

REPORT INFORMATION
  Report Type: Spontaneous
  Country: US (occurrence: None)
  Receive Date: 20130313
  Receipt Date: 20130313
  Transmission Date: 20140127
  Serious: Yes (Hospitalization, Other)
  Sender: FDA-Public Use
  Company Number: 2013P1002937

PATIENT
  Age: 22 Year
  Sex: Male

DRUGS (3)
  1. SULFAMETHOXAZOLE AND TRIMETHOPRIM [Suspect]
     Indication: ANTIFUNGAL PROPHYLAXIS
  2. SULFAMETHOXAZOLE AND TRIMETHOPRIM [Suspect]
  3. DIAZEPAM [Concomitant]

REACTIONS (17)
  - Mental status changes [None]
  - Asthenia [None]
  - Nausea [None]
  - Vomiting [None]
  - Oropharyngeal candidiasis [None]
  - Abdominal tenderness [None]
  - Hyponatraemia [None]
  - Hyperkalaemia [None]
  - Metabolic acidosis [None]
  - Renal failure acute [None]
  - Platelet count decreased [None]
  - Pancreatitis [None]
  - Hepatitis [None]
  - Rhabdomyolysis [None]
  - Haemolytic anaemia [None]
  - Blood urine present [None]
  - Hypovolaemia [None]
